FAERS Safety Report 22973542 (Version 2)
Quarter: 2023Q4

REPORT INFORMATION
  Report Type: Spontaneous
  Country: JP (occurrence: JP)
  Receive Date: 20230922
  Receipt Date: 20231122
  Transmission Date: 20240109
  Serious: Yes (Hospitalization, Other)
  Sender: FDA-Public Use
  Company Number: JP-TAKEDA-2022TJP055811

PATIENT

DRUGS (1)
  1. ZEJULA [Suspect]
     Active Substance: NIRAPARIB
     Indication: Ovarian cancer
     Dosage: UNK
     Route: 048

REACTIONS (9)
  - Platelet count decreased [Unknown]
  - Neutrophil count decreased [Unknown]
  - Atrioventricular block [Unknown]
  - Malaise [Unknown]
  - Stomatitis [Unknown]
  - Headache [Unknown]
  - Arthralgia [Unknown]
  - Decreased appetite [Unknown]
  - Blood creatinine increased [Unknown]
